FAERS Safety Report 23645433 (Version 1)
Quarter: 2024Q1

REPORT INFORMATION
  Report Type: Spontaneous
  Country: ES (occurrence: ES)
  Receive Date: 20240318
  Receipt Date: 20240318
  Transmission Date: 20240410
  Serious: Yes (Other)
  Sender: FDA-Public Use
  Company Number: None

PATIENT
  Age: 54 Year
  Sex: Male

DRUGS (1)
  1. SPRAVATO [Suspect]
     Active Substance: ESKETAMINE
     Indication: Depression
     Dates: start: 20240205, end: 20240208

REACTIONS (4)
  - Hypertensive crisis [Recovered/Resolved]
  - Hallucination, visual [Recovered/Resolved]
  - Conversion disorder [Recovered/Resolved]
  - Dissociative disorder [Recovered/Resolved]

NARRATIVE: CASE EVENT DATE: 20240208
